FAERS Safety Report 20658733 (Version 1)
Quarter: 2022Q1

REPORT INFORMATION
  Report Type: Spontaneous
  Country: US (occurrence: US)
  Receive Date: 20220331
  Receipt Date: 20220331
  Transmission Date: 20220423
  Serious: No
  Sender: FDA-Public Use
  Company Number: US-SA-SAC20220329000089

PATIENT
  Age: 52 Year
  Sex: Female

DRUGS (13)
  1. DUPIXENT [Suspect]
     Active Substance: DUPILUMAB
     Indication: Asthma
     Dosage: 300 MG, QOW
     Route: 058
     Dates: start: 20211208
  2. ALBUTEROL SULFATE [Concomitant]
     Active Substance: ALBUTEROL SULFATE
  3. BETAMETHASONE\CLOTRIMAZOLE [Concomitant]
     Active Substance: BETAMETHASONE\CLOTRIMAZOLE
     Dosage: CLOTRIWBETA CRE DIPROP
  4. BACLOFEN [Concomitant]
     Active Substance: BACLOFEN
  5. CODEINE [Concomitant]
     Active Substance: CODEINE
     Dosage: CODEINE/GG SOL 10-100/5
  6. FLUCONAZOLE [Concomitant]
     Active Substance: FLUCONAZOLE
  7. FLUTICASONE [Concomitant]
     Active Substance: FLUTICASONE
     Dosage: FLUTICASONE SPR 50MCG
  8. HUMIRA [Concomitant]
     Active Substance: ADALIMUMAB
     Dosage: HUMIRA CF PEN;HUMIRA PEN INJ 40/0.4M
  9. HYDROCODONE BITARTRATE AND ACETAMINOPHEN [Concomitant]
     Active Substance: ACETAMINOPHEN\HYDROCODONE BITARTRATE
     Dosage: HYDROCO/APAP TAB 7.5-325
  10. ACETAMINOPHEN\HYDROCODONE [Concomitant]
     Active Substance: ACETAMINOPHEN\HYDROCODONE
     Dosage: 800MG
  11. IBUPROFEN [Concomitant]
     Active Substance: IBUPROFEN
  12. OXYBUTYNIN [Concomitant]
     Active Substance: OXYBUTYNIN
     Dosage: OXYBUTYNIN TAB IOMC EH;
  13. DEXAMETHASONE\TOBRAMYCIN [Concomitant]
     Active Substance: DEXAMETHASONE\TOBRAMYCIN
     Dosage: TOBRA/DEXAME SUS 0.3-0.1%

REACTIONS (1)
  - Infection [Unknown]
